FAERS Safety Report 5475633-4 (Version None)
Quarter: 2007Q4

REPORT INFORMATION
  Report Type: 
  Country: None (occurrence: None)
  Receive Date: 20071003
  Receipt Date: 20070627
  Transmission Date: 20080405
  Serious: No
  Sender: FDA-Public Use
  Company Number: US-KINGPHARMUSA00001-K200700816

PATIENT

DRUGS (6)
  1. SONATA [Suspect]
     Indication: INSOMNIA
     Dosage: UNK, SINGLE
     Route: 048
     Dates: start: 20070601, end: 20070602
  2. LUNESTA [Concomitant]
     Indication: INSOMNIA
     Dosage: 3 MG, QHS
     Route: 048
     Dates: start: 20070605
  3. LUNESTA [Concomitant]
     Dosage: 2 MG, QHS
     Route: 048
     Dates: start: 20070529
  4. LUNESTA [Concomitant]
     Dosage: 3 MG, QHS
     Route: 048
     Dates: start: 20060901, end: 20070528
  5. ASPIRIN [Concomitant]
     Dosage: UNK, QHS
     Route: 048
     Dates: start: 20070529, end: 20070531
  6. RESTASIS [Concomitant]
     Dosage: UNK, QHS
     Route: 048
     Dates: start: 20070605

REACTIONS (2)
  - DRUG INEFFECTIVE [None]
  - HALLUCINATION, AUDITORY [None]
